FAERS Safety Report 5041018-8 (Version None)
Quarter: 2006Q2

REPORT INFORMATION
  Report Type: 
  Country: None (occurrence: None)
  Receive Date: 20060629
  Receipt Date: 20060629
  Transmission Date: 20061013
  Serious: Yes (Other)
  Sender: FDA-Public Use
  Company Number: None

PATIENT
  Age: 39 Year
  Sex: Male
  Weight: 117.9352 kg

DRUGS (1)
  1. VYTORIN 10/40 MERCK/SCHERING- PLOUGH [Suspect]
     Indication: BLOOD CHOLESTEROL INCREASED
     Dosage: 10/40 MG 1 TAB AT BEDTIME PO
     Route: 048
     Dates: start: 20060220, end: 20060626

REACTIONS (1)
  - PHARMACEUTICAL PRODUCT COMPLAINT [None]
